FAERS Safety Report 8228513-5 (Version None)
Quarter: 2012Q1

REPORT INFORMATION
  Report Type: 
  Country: None (occurrence: None)
  Receive Date: 20120322
  Receipt Date: 20110517
  Transmission Date: 20120608
  Serious: Yes (Other)
  Sender: FDA-Public Use
  Company Number: US-BRISTOL-MYERS SQUIBB COMPANY-15753544

PATIENT
  Age: 43 Year
  Sex: Male

DRUGS (1)
  1. ERBITUX [Suspect]
     Indication: HEAD AND NECK CANCER
     Dosage: INFUSION X 2HRS
     Route: 042
     Dates: start: 20110516, end: 20110516

REACTIONS (3)
  - PRURITUS [None]
  - THROAT TIGHTNESS [None]
  - CHEST PAIN [None]
